FAERS Safety Report 5244402-2 (Version None)
Quarter: 2007Q1

REPORT INFORMATION
  Report Type: 
  Country: None (occurrence: None)
  Receive Date: 20070222
  Receipt Date: 20070213
  Transmission Date: 20070707
  Serious: Yes (Hospitalization, Other)
  Sender: FDA-Public Use
  Company Number: US-PFIZER INC-2007003302

PATIENT
  Sex: Female
  Weight: 65.8 kg

DRUGS (1)
  1. BEXTRA [Suspect]
     Indication: PAIN

REACTIONS (4)
  - AMNESIA [None]
  - CARDIOVASCULAR DISORDER [None]
  - CEREBROVASCULAR ACCIDENT [None]
  - DEPRESSION [None]
